FAERS Safety Report 5284849-1 (Version None)
Quarter: 2007Q1

REPORT INFORMATION
  Report Type: 
  Country: None (occurrence: None)
  Receive Date: 20061229
  Receipt Date: 20060922
  Transmission Date: 20070707
  Serious: Yes (Other)
  Sender: FDA-Public Use
  Company Number: PHEH2006US00768

PATIENT
  Age: 37 Year
  Sex: Male
  Weight: 99.8 kg

DRUGS (3)
  1. CLOZARIL [Suspect]
     Indication: SCHIZOPHRENIA
     Dosage: SEE IMAGE
     Route: 048
     Dates: start: 19970804
  2. CLONAZEPAM [Concomitant]
  3. ARICEPT [Concomitant]

REACTIONS (1)
  - HYPERTRIGLYCERIDAEMIA [None]
